FAERS Safety Report 18623335 (Version 1)
Quarter: 2020Q4

REPORT INFORMATION
  Report Type: Spontaneous
  Country: US (occurrence: US)
  Receive Date: 20201216
  Receipt Date: 20201216
  Transmission Date: 20210114
  Serious: Yes (Other)
  Sender: FDA-Public Use
  Company Number: US-AMGEN-USASP2020201607

PATIENT
  Age: 51 Year
  Sex: Female

DRUGS (3)
  1. BEVACIZUMAB. [Suspect]
     Active Substance: BEVACIZUMAB
     Indication: LUNG ADENOCARCINOMA
     Dosage: 15 MILLIGRAM/KILOGRAM, Q3WK
     Route: 065
  2. BEVACIZUMAB. [Suspect]
     Active Substance: BEVACIZUMAB
     Indication: BRAIN NEOPLASM MALIGNANT
  3. LORLATINIB [Concomitant]
     Active Substance: LORLATINIB

REACTIONS (2)
  - Therapy partial responder [Unknown]
  - Metastases to meninges [Not Recovered/Not Resolved]
